FAERS Safety Report 25793272 (Version 3)
Quarter: 2025Q4

REPORT INFORMATION
  Report Type: Spontaneous
  Country: US (occurrence: None)
  Receive Date: 20250911
  Receipt Date: 20251024
  Transmission Date: 20260117
  Serious: No
  Sender: INCYTE
  Company Number: US-INCYTE CORPORATION-2025IN009693

PATIENT
  Age: 73 Year

DRUGS (1)
  1. JAKAFI [Suspect]
     Active Substance: RUXOLITINIB
     Indication: Product used for unknown indication
     Dosage: 10 MILLIGRAM, BID

REACTIONS (17)
  - Alopecia [Unknown]
  - Rhinorrhoea [Unknown]
  - Nasal congestion [Unknown]
  - Seborrhoea [Unknown]
  - Oral herpes [Recovered/Resolved]
  - Nasal ulcer [Unknown]
  - Feeling cold [Unknown]
  - Sneezing [Unknown]
  - Eye pain [Unknown]
  - Vision blurred [Unknown]
  - Gingival pain [Unknown]
  - Toothache [Unknown]
  - Oral pain [Unknown]
  - Drug intolerance [Unknown]
  - Headache [Unknown]
  - Viral infection [Unknown]
  - Malaise [Unknown]
